FAERS Safety Report 5081116-6 (Version None)
Quarter: 2006Q3

REPORT INFORMATION
  Report Type: 
  Country: None (occurrence: None)
  Receive Date: 20060720
  Receipt Date: 20060111
  Transmission Date: 20061208
  Serious: Yes (Other)
  Sender: FDA-Public Use
  Company Number: 2006006841

PATIENT
  Age: 60 Year
  Sex: Female
  Weight: 99.7913 kg

DRUGS (6)
  1. CELEBREX [Suspect]
     Indication: OSTEOARTHRITIS
     Dosage: 400 MG (1 IN 1 D),ORAL
     Route: 048
     Dates: start: 20060101, end: 20060108
  2. VITAMIN E [Concomitant]
  3. LIPITOR [Concomitant]
  4. ASPIRIN [Concomitant]
  5. CENTRUM PERFORMANCE (GINKGO BILOBA LEAF EXTRACT, MINERALS NOS, PANAX G [Concomitant]
  6. ACTONEL [Concomitant]

REACTIONS (3)
  - CHEST DISCOMFORT [None]
  - GENERALISED OEDEMA [None]
  - PRURITUS [None]
